FAERS Safety Report 7305546-4 (Version None)
Quarter: 2011Q1

REPORT INFORMATION
  Report Type: 
  Country: None (occurrence: None)
  Receive Date: 20110222
  Receipt Date: 20101201
  Transmission Date: 20110831
  Serious: Yes (Other)
  Sender: FDA-Public Use
  Company Number: US-MYLANLABS-2010S1021854

PATIENT
  Age: 50 Year
  Sex: Male
  Weight: 70.31 kg

DRUGS (1)
  1. ALPRAZOLAM [Suspect]
     Indication: ANXIETY
     Route: 048
     Dates: start: 20080101, end: 20101124

REACTIONS (4)
  - DRUG WITHDRAWAL SYNDROME [None]
  - ANXIETY [None]
  - DRUG INEFFECTIVE [None]
  - CONVULSION [None]
